FAERS Safety Report 10110780 (Version 1)
Quarter: 2014Q2

REPORT INFORMATION
  Report Type: Report from Study
  Country: US (occurrence: US)
  Receive Date: 20140425
  Receipt Date: 20140425
  Transmission Date: 20141212
  Serious: Yes (Other)
  Sender: FDA-Public Use
  Company Number: US-PURDUE-USA-2014-0113187

PATIENT
  Age: 54 Year
  Sex: Female

DRUGS (2)
  1. OXY CR TAB [Suspect]
     Indication: BACK PAIN
     Dosage: 80 MG, BID
     Route: 048
     Dates: start: 201403, end: 201404
  2. OXY CR TAB [Suspect]
     Dosage: 40 MG, UNK
     Dates: start: 201403, end: 201404

REACTIONS (1)
  - Foot fracture [Recovered/Resolved]
